FAERS Safety Report 8966085 (Version 1)
Quarter: 2012Q4

REPORT INFORMATION
  Report Type: 
  Country: US (occurrence: US)
  Receive Date: 20121217
  Receipt Date: 20121217
  Transmission Date: 20130627
  Serious: No
  Sender: FDA-Public Use
  Company Number: US-PFIZER INC-2012316003

PATIENT
  Sex: Female

DRUGS (3)
  1. ADVIL [Suspect]
     Indication: HEADACHE
     Dosage: 200 mg, 2x/day
     Route: 048
     Dates: start: 201211
  2. ADVIL [Suspect]
     Indication: SHOULDER PAIN
  3. ADVIL [Suspect]
     Indication: CHRONIC BACK PAIN

REACTIONS (1)
  - Drug ineffective [Not Recovered/Not Resolved]
